FAERS Safety Report 4529758-8 (Version None)
Quarter: 2004Q4

REPORT INFORMATION
  Report Type: 
  Country: None (occurrence: None)
  Receive Date: 20041126
  Receipt Date: 20040819
  Transmission Date: 20050328
  Serious: No
  Sender: FDA-Public Use
  Company Number: SU-2004-002618

PATIENT
  Age: 64 Year
  Sex: Female
  Weight: 101.6057 kg

DRUGS (1)
  1. BENICAR [Suspect]
     Indication: HYPERTENSION
     Dosage: MG QD PO
     Route: 048
     Dates: start: 20040527, end: 20040804

REACTIONS (2)
  - COUGH [None]
  - RETCHING [None]
